FAERS Safety Report 11744533 (Version 4)
Quarter: 2015Q4

REPORT INFORMATION
  Report Type: Report from Study
  Country: IL (occurrence: IL)
  Receive Date: 20151116
  Receipt Date: 20151230
  Transmission Date: 20160304
  Serious: Yes (Hospitalization)
  Sender: FDA-Public Use
  Company Number: IL-ABBVIE-15P-082-1498575-00

PATIENT
  Age: 62 Year
  Sex: Female

DRUGS (1)
  1. DUODOPA [Suspect]
     Active Substance: CARBIDOPA\LEVODOPA
     Indication: PARKINSON^S DISEASE
     Route: 050
     Dates: start: 20121030

REACTIONS (5)
  - Fall [Unknown]
  - Upper limb fracture [Unknown]
  - Haemoglobin decreased [Recovering/Resolving]
  - Gastric ulcer [Unknown]
  - Device dislocation [Unknown]
